FAERS Safety Report 8158872-3 (Version None)
Quarter: 2012Q1

REPORT INFORMATION
  Report Type: 
  Country: None (occurrence: None)
  Receive Date: 20120223
  Receipt Date: 20120213
  Transmission Date: 20120608
  Serious: Yes (Other)
  Sender: FDA-Public Use
  Company Number: JP-PFIZER INC-2012045806

PATIENT
  Age: 64 Year
  Sex: Female

DRUGS (7)
  1. CELECOXIB [Suspect]
     Dosage: UNK
     Route: 048
     Dates: start: 20100401
  2. SITAGLIPTIN PHOSPHATE [Concomitant]
     Dosage: UNK
     Route: 048
  3. LYRICA [Suspect]
     Dosage: UNK
     Route: 048
     Dates: start: 20101201
  4. ACTOS [Concomitant]
     Dosage: UNK
     Route: 048
  5. METFORMIN HCL [Concomitant]
     Route: 048
  6. METFORMIN HCL [Concomitant]
     Dosage: UNK
     Route: 048
  7. AMARYL [Concomitant]
     Dosage: UNK
     Route: 048

REACTIONS (1)
  - DIABETES MELLITUS [None]
